FAERS Safety Report 25910150 (Version 1)
Quarter: 2025Q4

REPORT INFORMATION
  Report Type: Spontaneous
  Country: US (occurrence: US)
  Receive Date: 20251012
  Receipt Date: 20251012
  Transmission Date: 20260117
  Serious: No
  Sender: SANOFI AVENTIS
  Company Number: US-SA-2025SA301792

PATIENT
  Age: 20 Year
  Sex: Female

DRUGS (1)
  1. DUPIXENT [Suspect]
     Active Substance: DUPILUMAB
     Indication: Eczema
     Dosage: 300 MG, QOW
     Route: 058
     Dates: start: 202509

REACTIONS (10)
  - Scab [Unknown]
  - Bacterial infection [Recovering/Resolving]
  - Erythema [Unknown]
  - Condition aggravated [Unknown]
  - Pruritus [Unknown]
  - Skin exfoliation [Unknown]
  - Condition aggravated [Unknown]
  - Eczema [Unknown]
  - Rash [Unknown]
  - Anxiety [Unknown]

NARRATIVE: CASE EVENT DATE: 20250101
